FAERS Safety Report 9234278 (Version 1)
Quarter: 2013Q2

REPORT INFORMATION
  Report Type: Spontaneous
  Country: GB (occurrence: GB)
  Receive Date: 20130416
  Receipt Date: 20130416
  Transmission Date: 20140414
  Serious: Yes (Other)
  Sender: FDA-Public Use
  Company Number: PHHY2013GB034865

PATIENT
  Age: 60 Year
  Sex: Female
  Weight: 68 kg

DRUGS (1)
  1. INDOMETHACIN [Suspect]
     Indication: FACIAL PAIN
     Dosage: 75 MG, UNK
     Route: 048
     Dates: start: 20130102, end: 20130102

REACTIONS (3)
  - Aphasia [Recovered/Resolved]
  - Palpitations [Recovered/Resolved]
  - Asthenia [Recovered/Resolved]
